FAERS Safety Report 13997074 (Version 1)
Quarter: 2017Q3

REPORT INFORMATION
  Report Type: Spontaneous
  Country: US (occurrence: US)
  Receive Date: 20170921
  Receipt Date: 20170921
  Transmission Date: 20171128
  Serious: No
  Sender: FDA-Public Use
  Company Number: US-RISING PHARMACEUTICALS, INC.-2017RIS00003

PATIENT
  Sex: Female

DRUGS (1)
  1. PROCTOZONE-HC [Suspect]
     Active Substance: HYDROCORTISONE
     Indication: ANORECTAL DISCOMFORT
     Dosage: UNK, 2X/DAY
     Route: 061

REACTIONS (2)
  - Rash [Recovered/Resolved]
  - Malaise [Recovered/Resolved]
